FAERS Safety Report 9738570 (Version 1)
Quarter: 2013Q4

REPORT INFORMATION
  Report Type: Spontaneous
  Country: DE (occurrence: DE)
  Receive Date: 20131209
  Receipt Date: 20131209
  Transmission Date: 20140711
  Serious: Yes (Other)
  Sender: FDA-Public Use
  Company Number: DE-ROCHE-1313992

PATIENT
  Sex: Female

DRUGS (3)
  1. HERCEPTIN [Suspect]
     Indication: PRODUCT USED FOR UNKNOWN INDICATION
     Route: 042
  2. HERCEPTIN [Suspect]
     Route: 058
     Dates: start: 20131119
  3. HERCEPTIN [Suspect]
     Route: 058
     Dates: start: 20131203

REACTIONS (1)
  - Blood glucose abnormal [Recovered/Resolved]
